FAERS Safety Report 9925256 (Version 1)
Quarter: 2014Q1

REPORT INFORMATION
  Report Type: Spontaneous
  Country: US (occurrence: US)
  Receive Date: 20140226
  Receipt Date: 20140226
  Transmission Date: 20141002
  Serious: Yes (Life-Threatening)
  Sender: FDA-Public Use
  Company Number: US-BRACCO-009815

PATIENT
  Age: 57 Year
  Sex: Female
  Weight: 93 kg

DRUGS (9)
  1. BENADRYL [Concomitant]
     Route: 048
     Dates: start: 20130828, end: 20130828
  2. SOLU-MEDROL [Concomitant]
     Route: 042
     Dates: start: 20130828, end: 20130828
  3. ALBUTEROL [Concomitant]
     Route: 055
  4. PLAVIX [Concomitant]
  5. PEPCID [Concomitant]
     Route: 048
     Dates: start: 20130828, end: 20130828
  6. LEXAPRO [Concomitant]
  7. ASPIRIN [Concomitant]
  8. ISOVUE 370 [Suspect]
     Indication: CATHETERISATION CARDIAC
     Route: 042
     Dates: start: 20130828, end: 20130828
  9. LIPITOR [Concomitant]

REACTIONS (4)
  - Cough [Not Recovered/Not Resolved]
  - Wheezing [Not Recovered/Not Resolved]
  - Swollen tongue [Not Recovered/Not Resolved]
  - Pharyngeal oedema [Not Recovered/Not Resolved]
